FAERS Safety Report 7851926-8 (Version None)
Quarter: 2011Q4

REPORT INFORMATION
  Report Type: 
  Country: None (occurrence: None)
  Receive Date: 20111026
  Receipt Date: 20111017
  Transmission Date: 20120403
  Serious: Yes (Other)
  Sender: FDA-Public Use
  Company Number: US-JNJFOC-20111008317

PATIENT
  Age: 65 Year
  Sex: Male

DRUGS (1)
  1. COOL MINT LISTERINE [Suspect]
     Indication: PRODUCT USED FOR UNKNOWN INDICATION
     Route: 048
     Dates: start: 20111017

REACTIONS (5)
  - PYREXIA [None]
  - DYSSTASIA [None]
  - INCORRECT ROUTE OF DRUG ADMINISTRATION [None]
  - LETHARGY [None]
  - CONFUSIONAL STATE [None]
